FAERS Safety Report 9649246 (Version 3)
Quarter: 2013Q4

REPORT INFORMATION
  Report Type: Spontaneous
  Country: US (occurrence: US)
  Receive Date: 20131028
  Receipt Date: 20131219
  Transmission Date: 20140711
  Serious: Yes (Other)
  Sender: FDA-Public Use
  Company Number: US-GLAXOSMITHKLINE-A1046482A

PATIENT
  Age: 65 Year
  Sex: Female

DRUGS (7)
  1. ADVAIR [Suspect]
     Indication: ASTHMA
     Dosage: 1PUFF TWICE PER DAY
     Route: 055
  2. VENTOLIN [Suspect]
     Indication: ASTHMA
     Dosage: 2SPR AS REQUIRED
     Route: 055
  3. TIZANIDINE [Concomitant]
  4. GABAPENTIN [Concomitant]
  5. OXYCODONE/ACETAMINOPHEN [Concomitant]
  6. CLONAZEPAM [Concomitant]
  7. HYDROXYZINE [Concomitant]

REACTIONS (13)
  - Pneumonia [Recovered/Resolved]
  - Drug ineffective [Not Recovered/Not Resolved]
  - Dyspnoea [Recovered/Resolved]
  - Respiratory tract irritation [Not Recovered/Not Resolved]
  - Oropharyngeal pain [Not Recovered/Not Resolved]
  - Odynophagia [Not Recovered/Not Resolved]
  - Expired drug administered [Not Recovered/Not Resolved]
  - Nasopharyngitis [Not Recovered/Not Resolved]
  - Bronchitis [Not Recovered/Not Resolved]
  - Product quality issue [Unknown]
  - Stomatitis [Unknown]
  - Throat irritation [Unknown]
  - Adverse drug reaction [Unknown]
